FAERS Safety Report 23976083 (Version 1)
Quarter: 2024Q2

REPORT INFORMATION
  Report Type: Spontaneous
  Country: BR (occurrence: BR)
  Receive Date: 20240614
  Receipt Date: 20240614
  Transmission Date: 20240716
  Serious: Yes (Other)
  Sender: FDA-Public Use
  Company Number: BR-BAYER-2024A081809

PATIENT
  Sex: Female

DRUGS (2)
  1. DIENOGEST\ESTRADIOL VALERATE [Suspect]
     Active Substance: DIENOGEST\ESTRADIOL VALERATE
     Indication: Menstrual cycle management
     Dosage: UNK
     Route: 048
  2. DIENOGEST\ESTRADIOL VALERATE [Suspect]
     Active Substance: DIENOGEST\ESTRADIOL VALERATE
     Indication: Menstrual cycle management
     Dosage: UNK
     Route: 048
     Dates: end: 20240602

REACTIONS (8)
  - Syncope [None]
  - Illness [Not Recovered/Not Resolved]
  - Dizziness [Not Recovered/Not Resolved]
  - Headache [None]
  - Product use in unapproved indication [None]
  - Discomfort [None]
  - Prescription drug used without a prescription [None]
  - Endometriosis [None]
